FAERS Safety Report 9891740 (Version 1)
Quarter: 2014Q1

REPORT INFORMATION
  Report Type: Spontaneous
  Country: US (occurrence: US)
  Receive Date: 20140212
  Receipt Date: 20140212
  Transmission Date: 20141002
  Serious: Yes (Other)
  Sender: FDA-Public Use
  Company Number: PHEH2014US002698

PATIENT
  Sex: Male

DRUGS (2)
  1. TEKTURNA [Suspect]
  2. CARVEDILOL [Suspect]
     Dosage: UNK UKN, UNK

REACTIONS (2)
  - Blood pressure increased [Unknown]
  - Psoriatic arthropathy [Unknown]
